FAERS Safety Report 20461562 (Version 1)
Quarter: 2022Q1

REPORT INFORMATION
  Report Type: Report from Study
  Country: US (occurrence: None)
  Receive Date: 20220211
  Receipt Date: 20220211
  Transmission Date: 20220423
  Serious: Yes (Death)
  Sender: FDA-Public Use
  Company Number: 2022A062936

PATIENT
  Sex: Male
  Weight: 59 kg

DRUGS (11)
  1. CALQUENCE [Suspect]
     Active Substance: ACALABRUTINIB
     Indication: Lymphoma
     Route: 048
     Dates: start: 20210217
  2. FAMOTIDINE [Concomitant]
     Active Substance: FAMOTIDINE
  3. FISH OIL [Concomitant]
     Active Substance: FISH OIL
  4. IRBESARTAN [Concomitant]
     Active Substance: IRBESARTAN
  5. MULTIVAMTIN [Concomitant]
  6. VITAMIN C [Concomitant]
     Active Substance: ASCORBIC ACID
  7. GAVISCON [Concomitant]
     Active Substance: ALUMINUM HYDROXIDE\MAGNESIUM CARBONATE
  8. NIFEDIPINE [Concomitant]
     Active Substance: NIFEDIPINE
  9. VANCOMYCIN [Concomitant]
     Active Substance: VANCOMYCIN
  10. HYDRALAZINE [Concomitant]
     Active Substance: HYDRALAZINE HYDROCHLORIDE
  11. LORAZEPAM [Concomitant]
     Active Substance: LORAZEPAM

REACTIONS (1)
  - Death [Fatal]
